FAERS Safety Report 22594673 (Version 4)
Quarter: 2023Q4

REPORT INFORMATION
  Report Type: Report from Study
  Country: TR (occurrence: TR)
  Receive Date: 20230613
  Receipt Date: 20231215
  Transmission Date: 20240110
  Serious: Yes (Hospitalization)
  Sender: FDA-Public Use
  Company Number: TR-ABBVIE-5285006

PATIENT
  Sex: Female

DRUGS (2)
  1. CARBIDOPA\LEVODOPA [Suspect]
     Active Substance: CARBIDOPA\LEVODOPA
     Indication: Parkinson^s disease
     Dosage: MORNING DOSE (ML): 6.00 CONTINUOUS DOSE (ML): 3.30 EXTRA DOSE (ML): 1.00?DRUG END DATE: 2023
     Route: 050
     Dates: start: 20230601
  2. CARBIDOPA\LEVODOPA [Suspect]
     Active Substance: CARBIDOPA\LEVODOPA
     Dosage: MORNING DOSE (ML): 4.50 CONTINUOUS DOSE (ML): 2.00 EXTRA DOSE (ML): 0.50
     Route: 050
     Dates: start: 20230727

REACTIONS (4)
  - C-reactive protein increased [Recovered/Resolved]
  - Device dislocation [Recovered/Resolved]
  - Bradykinesia [Unknown]
  - Hallucination [Not Recovered/Not Resolved]

NARRATIVE: CASE EVENT DATE: 20230101
